FAERS Safety Report 9348168 (Version 3)
Quarter: 2013Q3

REPORT INFORMATION
  Report Type: Spontaneous
  Country: FR (occurrence: FR)
  Receive Date: 20130614
  Receipt Date: 20130814
  Transmission Date: 20140515
  Serious: Yes (Other)
  Sender: FDA-Public Use
  Company Number: FR-JNJFOC-20130601846

PATIENT
  Age: 71 Year
  Sex: Female

DRUGS (2)
  1. YONDELIS [Suspect]
     Indication: OVARIAN CANCER RECURRENT
     Route: 042
  2. CAELYX [Suspect]
     Indication: OVARIAN CANCER RECURRENT
     Route: 042

REACTIONS (1)
  - Pancytopenia [Recovering/Resolving]
